FAERS Safety Report 7429255-6 (Version None)
Quarter: 2011Q2

REPORT INFORMATION
  Report Type: 
  Country: None (occurrence: None)
  Receive Date: 20110421
  Receipt Date: 20110415
  Transmission Date: 20111010
  Serious: Yes (Death)
  Sender: FDA-Public Use
  Company Number: US-ACTELION-A-NJ2011-47677

PATIENT

DRUGS (3)
  1. COUMADIN [Concomitant]
  2. VELETRI [Suspect]
     Indication: PULMONARY ARTERIAL HYPERTENSION
     Dosage: 30 NG/KG, PER MIN
     Route: 041
     Dates: start: 20110209, end: 20110415
  3. SILDENAFIL CITRATE [Concomitant]

REACTIONS (1)
  - PULMONARY HYPERTENSION [None]
